FAERS Safety Report 5213064-2 (Version None)
Quarter: 2007Q1

REPORT INFORMATION
  Report Type: 
  Country: None (occurrence: None)
  Receive Date: 20070119
  Receipt Date: 20061009
  Transmission Date: 20070707
  Serious: Yes (Other)
  Sender: FDA-Public Use
  Company Number: US-GLAXOSMITHKLINE-A0622918A

PATIENT
  Age: 53 Year
  Sex: Female

DRUGS (3)
  1. HYCAMTIN [Suspect]
     Dosage: 1.5MGM2 PER DAY
     Route: 042
     Dates: start: 20061006, end: 20061008
  2. ZOFRAN [Suspect]
     Indication: PROPHYLAXIS OF NAUSEA AND VOMITING
     Route: 065
  3. DECADRON [Concomitant]

REACTIONS (1)
  - BLOOD BILIRUBIN INCREASED [None]
